FAERS Safety Report 6175910-8 (Version None)
Quarter: 2009Q2

REPORT INFORMATION
  Report Type: 
  Country: None (occurrence: None)
  Receive Date: 20090501
  Receipt Date: 20090425
  Transmission Date: 20091009
  Serious: Yes (Other)
  Sender: FDA-Public Use
  Company Number: ES-BAYER-200919491GPV

PATIENT
  Age: 47 Year
  Sex: Female

DRUGS (6)
  1. ALEMTUZUMAB [Suspect]
     Indication: TRANSPLANT
     Route: 042
     Dates: start: 20061201
  2. TACROLIMUS [Concomitant]
     Indication: TRANSPLANT
     Dosage: 12-18 NG/ML
  3. TACROLIMUS [Concomitant]
     Dosage: 8-12 NG/ML
  4. MYCOPHENOLATE MOFETIL [Concomitant]
     Indication: TRANSPLANT
  5. PREDNISONE TAB [Concomitant]
     Indication: TRANSPLANT
  6. PREDNISONE TAB [Concomitant]
     Dosage: TAPERED TO 5 MG/DAY

REACTIONS (4)
  - BASAL CELL CARCINOMA [None]
  - HERPES ZOSTER [None]
  - LYMPHOPENIA [None]
  - TRANSPLANT REJECTION [None]
